FAERS Safety Report 19787648 (Version 1)
Quarter: 2021Q3

REPORT INFORMATION
  Report Type: Spontaneous
  Country: US (occurrence: US)
  Receive Date: 20210903
  Receipt Date: 20210903
  Transmission Date: 20211014
  Serious: No
  Sender: FDA-Public Use
  Company Number: US-DECIPHERA PHARMACEUTICALS LLC-2021US000596

PATIENT
  Age: 57 Year
  Sex: Female
  Weight: 45.35 kg

DRUGS (1)
  1. QINLOCK [Suspect]
     Active Substance: RIPRETINIB
     Indication: SMALL INTESTINE CARCINOMA
     Dosage: 150 MILLIGRAM, QD
     Route: 048
     Dates: start: 20200619, end: 20210707

REACTIONS (1)
  - Drug ineffective [Unknown]
